FAERS Safety Report 10830899 (Version 1)
Quarter: 2015Q1

REPORT INFORMATION
  Report Type: Report from Study
  Country: US (occurrence: US)
  Receive Date: 20150219
  Receipt Date: 20150219
  Transmission Date: 20150721
  Serious: No
  Sender: FDA-Public Use
  Company Number: US-ABBVIE-14P-163-1196001-00

PATIENT
  Sex: Female

DRUGS (1)
  1. HUMIRA [Suspect]
     Active Substance: ADALIMUMAB
     Indication: CROHN^S DISEASE
     Route: 065

REACTIONS (9)
  - Nasopharyngitis [Unknown]
  - Tinnitus [Unknown]
  - Anxiety [Unknown]
  - Panic attack [Unknown]
  - Nasal congestion [Unknown]
  - Hypersensitivity [Unknown]
  - Ear pain [Unknown]
  - Ear discomfort [Unknown]
  - Malaise [Unknown]

NARRATIVE: CASE EVENT DATE: 201410
